FAERS Safety Report 9782070 (Version 5)
Quarter: 2014Q4

REPORT INFORMATION
  Report Type: Report from Study
  Country: CA (occurrence: CA)
  Receive Date: 20131226
  Receipt Date: 20141125
  Transmission Date: 20150529
  Serious: Yes (Other)
  Sender: FDA-Public Use
  Company Number: CA-ROCHE-1285840

PATIENT
  Age: 69 Year
  Sex: Male
  Weight: 89 kg

DRUGS (17)
  1. ATENOL [Concomitant]
     Active Substance: ATENOLOL
  2. LIPIDIL EZ [Concomitant]
     Active Substance: FENOFIBRATE
  3. ACCUPRIL [Concomitant]
     Active Substance: QUINAPRIL HYDROCHLORIDE
  4. ZYLOPRIM [Concomitant]
     Active Substance: ALLOPURINOL
  5. METHOTREXATE [Concomitant]
     Active Substance: METHOTREXATE
     Route: 048
  6. FOLIC ACID. [Concomitant]
     Active Substance: FOLIC ACID
  7. ASA [Concomitant]
     Active Substance: ASPIRIN
     Route: 065
  8. HUMALOG [Concomitant]
     Active Substance: INSULIN LISPRO
  9. PANTOPRAZOLE [Concomitant]
     Active Substance: PANTOPRAZOLE SODIUM
  10. AMLODIPINE [Concomitant]
     Active Substance: AMLODIPINE BESYLATE
  11. CYMBALTA [Concomitant]
     Active Substance: DULOXETINE HYDROCHLORIDE
  12. ULTRAM [Concomitant]
     Active Substance: TRAMADOL HYDROCHLORIDE
  13. ACTEMRA [Suspect]
     Active Substance: TOCILIZUMAB
     Indication: RHEUMATOID ARTHRITIS
     Route: 042
     Dates: start: 20131004
  14. MELOXICAM. [Concomitant]
     Active Substance: MELOXICAM
  15. ACTEMRA [Suspect]
     Active Substance: TOCILIZUMAB
     Route: 042
     Dates: start: 20131029
  16. DEPO-MEDROL [Concomitant]
     Active Substance: METHYLPREDNISOLONE ACETATE
  17. LANTUS [Concomitant]
     Active Substance: INSULIN GLARGINE

REACTIONS (7)
  - Headache [Recovered/Resolved]
  - Arthralgia [Not Recovered/Not Resolved]
  - Bladder cancer [Not Recovered/Not Resolved]
  - Upper extremity mass [Recovering/Resolving]
  - Heart rate decreased [Not Recovered/Not Resolved]
  - Dizziness [Recovering/Resolving]
  - Blood pressure diastolic increased [Unknown]

NARRATIVE: CASE EVENT DATE: 20131004
